FAERS Safety Report 7883345-2 (Version None)
Quarter: 2011Q4

REPORT INFORMATION
  Report Type: 
  Country: None (occurrence: None)
  Receive Date: 20111102
  Receipt Date: 20111020
  Transmission Date: 20120403
  Serious: Yes (Hospitalization)
  Sender: FDA-Public Use
  Company Number: IT-RANBAXY-2011RR-49822

PATIENT
  Sex: Male

DRUGS (5)
  1. COMBIVIR [Suspect]
     Indication: HIV INFECTION
     Dosage: UNK
     Route: 048
     Dates: start: 20090101
  2. METFORMIN HCL [Suspect]
     Indication: TYPE 2 DIABETES MELLITUS
     Dosage: 2000 MG/DAY
     Route: 048
     Dates: start: 20090101
  3. REYATAZ [Suspect]
     Indication: HIV INFECTION
     Dosage: 200 MG/DAY
     Route: 048
     Dates: start: 20090101
  4. FENOFIBRATE [Suspect]
     Indication: HYPERLIPIDAEMIA
     Dosage: 200 MG/DAY
     Route: 048
     Dates: start: 20090101
  5. INSULIN LISPRO [Concomitant]
     Indication: TYPE 2 DIABETES MELLITUS
     Dosage: 14 IU, UNK
     Route: 065

REACTIONS (1)
  - PANCREATITIS ACUTE [None]
